FAERS Safety Report 8269341-4 (Version None)
Quarter: 2012Q2

REPORT INFORMATION
  Report Type: 
  Country: None (occurrence: None)
  Receive Date: 20120409
  Receipt Date: 20120327
  Transmission Date: 20120825
  Serious: Yes (Other)
  Sender: FDA-Public Use
  Company Number: CA-ROCHE-1055876

PATIENT
  Sex: Female
  Weight: 95.113 kg

DRUGS (4)
  1. XOLAIR [Suspect]
     Route: 058
     Dates: start: 20090930
  2. PREDNISONE [Concomitant]
     Dates: start: 20090510
  3. XOLAIR [Suspect]
     Indication: ASTHMA
     Route: 058
     Dates: start: 20090428
  4. SYMBICORT [Concomitant]

REACTIONS (10)
  - ASTHMA [None]
  - NASOPHARYNGITIS [None]
  - HEADACHE [None]
  - CHRONIC OBSTRUCTIVE PULMONARY DISEASE [None]
  - LOWER RESPIRATORY TRACT INFECTION [None]
  - OCULAR HYPERAEMIA [None]
  - SINUS HEADACHE [None]
  - PULMONARY CONGESTION [None]
  - DYSPNOEA [None]
  - URINARY TRACT INFECTION [None]
